FAERS Safety Report 19787311 (Version 2)
Quarter: 2021Q3

REPORT INFORMATION
  Report Type: Other
  Country: KW (occurrence: KW)
  Receive Date: 20210903
  Receipt Date: 20210916
  Transmission Date: 20211014
  Serious: Yes (Death, Hospitalization)
  Sender: FDA-Public Use
  Company Number: KW-ROCHE-2902040

PATIENT
  Age: 56 Year
  Sex: Male
  Weight: 123 kg

DRUGS (1)
  1. OCRELIZUMAB. [Suspect]
     Active Substance: OCRELIZUMAB
     Indication: PRIMARY PROGRESSIVE MULTIPLE SCLEROSIS
     Dosage: ON 10/MAR/2021, HE RECEIVED THE MOST RECENT DOSE OF OCRELIZUMAB (600 MG) PRIOR TO ONSET OF SERIOUS A
     Route: 042
     Dates: start: 20200206

REACTIONS (1)
  - COVID-19 [Fatal]

NARRATIVE: CASE EVENT DATE: 20210809
